FAERS Safety Report 7574812-X (Version None)
Quarter: 2011Q2

REPORT INFORMATION
  Report Type: 
  Country: None (occurrence: None)
  Receive Date: 20110627
  Receipt Date: 20110609
  Transmission Date: 20111010
  Serious: Yes (Hospitalization, Other)
  Sender: FDA-Public Use
  Company Number: US-BAYER-200944024NA

PATIENT
  Age: 27 Year
  Sex: Female
  Weight: 58.957 kg

DRUGS (7)
  1. YAZ [Suspect]
     Indication: CONTRACEPTION
     Dosage: UNK
     Dates: start: 20060701, end: 20091015
  2. YAZ [Suspect]
     Indication: ACNE
  3. ADVIL LIQUI-GELS [Concomitant]
     Indication: PAIN
     Dosage: UNK UNK, PRN
  4. OXYCODONE HCL AND ACETAMINOPHEN [Concomitant]
     Indication: PAIN
     Dosage: UNK
  5. YASMIN [Suspect]
     Indication: CONTRACEPTION
     Dosage: UNK
     Dates: start: 20060701, end: 20091015
  6. YASMIN [Suspect]
     Indication: ACNE
     Dosage: UNK
     Dates: start: 20060701, end: 20061001
  7. NAPROXEN (ALEVE) [Concomitant]
     Indication: PAIN
     Dosage: UNK UNK, PRN

REACTIONS (12)
  - DYSPEPSIA [None]
  - CHOLECYSTITIS ACUTE [None]
  - ABDOMINAL PAIN UPPER [None]
  - GASTROOESOPHAGEAL REFLUX DISEASE [None]
  - CHOLELITHIASIS [None]
  - ABDOMINAL PAIN [None]
  - GALLBLADDER DISORDER [None]
  - NAUSEA [None]
  - VOMITING [None]
  - MEDICAL DIET [None]
  - PAIN [None]
  - PROCEDURAL PAIN [None]
